FAERS Safety Report 19407552 (Version 3)
Quarter: 2022Q1

REPORT INFORMATION
  Report Type: Other
  Country: US (occurrence: None)
  Receive Date: 20210611
  Receipt Date: 20220307
  Transmission Date: 20220423
  Serious: Yes (Other)
  Sender: FDA-Public Use
  Company Number: US-ROCHE-2847731

PATIENT
  Sex: Female

DRUGS (3)
  1. OCREVUS [Suspect]
     Active Substance: OCRELIZUMAB
     Indication: Multiple sclerosis
     Dosage: 300MG/10ML
     Route: 042
     Dates: start: 20201009
  2. OCREVUS [Suspect]
     Active Substance: OCRELIZUMAB
     Dosage: 300MG/10ML
     Route: 042
     Dates: start: 202104
  3. OCREVUS [Suspect]
     Active Substance: OCRELIZUMAB
     Dosage: ADDITIONAL DATE OF INFUSION: 23/JUL/2021?INFUSE 300 MG ON DAY 1 AND 14, THEN 600 MG EVERY 6 MONTHS
     Route: 042
     Dates: start: 20201023

REACTIONS (2)
  - Multiple sclerosis relapse [Unknown]
  - Off label use [Unknown]
